FAERS Safety Report 23810379 (Version 2)
Quarter: 2024Q3

REPORT INFORMATION
  Report Type: Spontaneous
  Country: IT (occurrence: IT)
  Receive Date: 20240502
  Receipt Date: 20240710
  Transmission Date: 20241017
  Serious: Yes (Life-Threatening, Hospitalization)
  Sender: MYLAN
  Company Number: IT-MYLANLABS-2024M1039215

PATIENT
  Age: 55 Year
  Sex: Female

DRUGS (1)
  1. LENALIDOMIDE [Suspect]
     Active Substance: LENALIDOMIDE
     Indication: Plasma cell myeloma
     Dosage: UNK
     Route: 065
     Dates: start: 20230201, end: 20230217

REACTIONS (5)
  - Myocarditis [Recovering/Resolving]
  - Acute myocardial infarction [Recovering/Resolving]
  - Cardiogenic shock [Recovering/Resolving]
  - Systolic dysfunction [Recovering/Resolving]
  - Ventricular tachycardia [Recovering/Resolving]
